FAERS Safety Report 15905733 (Version 1)
Quarter: 2019Q1

REPORT INFORMATION
  Report Type: Spontaneous
  Country: US (occurrence: US)
  Receive Date: 20190202
  Receipt Date: 20190202
  Transmission Date: 20190417
  Serious: No
  Sender: FDA-Public Use
  Company Number: None

PATIENT
  Age: 46 Year
  Sex: Female
  Weight: 117.45 kg

DRUGS (1)
  1. ICY HOT [Suspect]
     Active Substance: MENTHOL\METHYL SALICYLATE
     Indication: MUSCULOSKELETAL PAIN
     Dosage: ?          OTHER STRENGTH:MENTHOL 5%;QUANTITY:1 PATCH(ES);?
     Route: 061
     Dates: start: 20190107, end: 20190108

REACTIONS (2)
  - Application site burn [None]
  - Application site pain [None]

NARRATIVE: CASE EVENT DATE: 20190107
